FAERS Safety Report 5733873-0 (Version None)
Quarter: 2008Q2

REPORT INFORMATION
  Report Type: 
  Country: None (occurrence: None)
  Receive Date: 20080509
  Receipt Date: 20080429
  Transmission Date: 20081010
  Serious: Yes (Other)
  Sender: FDA-Public Use
  Company Number: US-ELI_LILLY_AND_COMPANY-US200804007103

PATIENT

DRUGS (3)
  1. HUMALOG [Suspect]
     Dosage: UNK, UNK
     Route: 064
     Dates: start: 20071201, end: 20080213
  2. METHYLDOPA [Concomitant]
     Indication: HYPERTENSION
     Route: 064
  3. PRENATAL [Concomitant]
     Route: 064

REACTIONS (4)
  - DRUG EXPOSURE DURING PREGNANCY [None]
  - DRUG EXPOSURE VIA BREAST MILK [None]
  - FOETAL DISTRESS SYNDROME [None]
  - HEART RATE DECREASED [None]
